FAERS Safety Report 22936209 (Version 3)
Quarter: 2023Q4

REPORT INFORMATION
  Report Type: Report from Study
  Country: AT (occurrence: AT)
  Receive Date: 20230912
  Receipt Date: 20231016
  Transmission Date: 20240110
  Serious: Yes (Hospitalization)
  Sender: FDA-Public Use
  Company Number: AT-ABBVIE-17P-009-2198958-00

PATIENT
  Age: 28 Year
  Sex: Male

DRUGS (5)
  1. UPADACITINIB [Suspect]
     Active Substance: UPADACITINIB
     Indication: Colitis ulcerative
     Route: 048
     Dates: start: 20171103
  2. COLON LECITHIN [Concomitant]
     Indication: Colitis ulcerative
     Dosage: TIME INTERVAL: 0.33333333 DAYS
     Route: 048
     Dates: start: 201612
  3. FOSTER [Concomitant]
     Active Substance: BECLOMETHASONE\FORMOTEROL
     Indication: Asthma
     Dosage: 100/60
     Route: 055
     Dates: start: 201602, end: 20171211
  4. PENTASA [Concomitant]
     Active Substance: MESALAMINE
     Indication: Colitis ulcerative
     Route: 048
     Dates: start: 201701
  5. SPIRIVA [Concomitant]
     Active Substance: TIOTROPIUM BROMIDE MONOHYDRATE
     Indication: Asthma
     Route: 055
     Dates: start: 201706, end: 20171211

REACTIONS (1)
  - Pneumonia [Recovered/Resolved]

NARRATIVE: CASE EVENT DATE: 20171211
